FAERS Safety Report 5962185-5 (Version None)
Quarter: 2008Q4

REPORT INFORMATION
  Report Type: 
  Country: None (occurrence: None)
  Receive Date: 20081119
  Receipt Date: 20080812
  Transmission Date: 20090506
  Serious: No
  Sender: FDA-Public Use
  Company Number: WAES 0808USA02114

PATIENT
  Age: 80 Year
  Sex: Male

DRUGS (8)
  1. JANUVIA [Suspect]
     Indication: DIABETES MELLITUS
     Dosage: 25 MG/DAILY/PO
     Route: 048
  2. GLUCOTROL [Concomitant]
  3. PRANDIN [Concomitant]
  4. VYTORIN [Concomitant]
  5. THERAPY UNSPECIFIED [Concomitant]
  6. ASCORBIC ACID [Concomitant]
  7. ASPIRIN [Concomitant]
  8. LEVOTHYROXINE SODIUM [Concomitant]

REACTIONS (1)
  - NIPPLE PAIN [None]
